FAERS Safety Report 12479412 (Version 1)
Quarter: 2016Q2

REPORT INFORMATION
  Report Type: Spontaneous
  Country: US (occurrence: None)
  Receive Date: 20160617
  Receipt Date: 20160617
  Transmission Date: 20160815
  Serious: Yes (Hospitalization)
  Sender: FDA-Public Use
  Company Number: None

PATIENT
  Age: 64 Year
  Sex: Male
  Weight: 68.7 kg

DRUGS (1)
  1. MEMANTINE HYDROCHLORIDE. [Suspect]
     Active Substance: MEMANTINE HYDROCHLORIDE
     Dates: end: 20160601

REACTIONS (7)
  - Malignant neoplasm progression [None]
  - Dyspnoea [None]
  - Neurological decompensation [None]
  - Non-small cell lung cancer metastatic [None]
  - Pleural effusion [None]
  - Hypoxia [None]
  - Mental status changes [None]

NARRATIVE: CASE EVENT DATE: 20160602
